FAERS Safety Report 24727008 (Version 2)
Quarter: 2025Q1

REPORT INFORMATION
  Report Type: Spontaneous
  Country: US (occurrence: US)
  Receive Date: 20241212
  Receipt Date: 20250102
  Transmission Date: 20250409
  Serious: Yes (Other)
  Sender: TEVA
  Company Number: US-TEVA-VS-3272677

PATIENT
  Age: 17 Year
  Sex: Male

DRUGS (13)
  1. CLONIDINE [Suspect]
     Active Substance: CLONIDINE
     Indication: Dystonia
     Route: 062
  2. CLONIDINE [Suspect]
     Active Substance: CLONIDINE
     Indication: Delirium
  3. OXYCODONE [Concomitant]
     Active Substance: OXYCODONE
     Indication: Dystonia
     Dosage: BY JEJUNOSTOMY TUBE
     Route: 065
  4. DIAZEPAM [Concomitant]
     Active Substance: DIAZEPAM
     Indication: Dystonia
     Route: 042
  5. ACETAMINOPHEN [Concomitant]
     Active Substance: ACETAMINOPHEN
     Indication: Supportive care
     Dosage: BY JEJUNOSTOMY TUBE
     Route: 065
  6. RISPERIDONE [Concomitant]
     Active Substance: RISPERIDONE
     Indication: Agitation
     Route: 065
  7. GABAPENTIN [Concomitant]
     Active Substance: GABAPENTIN
     Indication: Dystonia
     Route: 065
  8. DANTROLENE [Concomitant]
     Active Substance: DANTROLENE
     Indication: Dystonia
     Dosage: BY JEJUNOSTOMY TUBE
     Route: 042
  9. CANNABIDIOL [Concomitant]
     Active Substance: CANNABIDIOL
     Indication: Muscle spasticity
     Dosage: BY JEJUNOSTOMY TUBE
     Route: 065
  10. CYCLOBENZAPRINE [Concomitant]
     Active Substance: CYCLOBENZAPRINE
     Indication: Muscle spasticity
     Dosage: BY JEJUNOSTOMY TUBE
     Route: 065
  11. HYDROMORPHONE [Concomitant]
     Active Substance: HYDROMORPHONE
     Indication: Pain management
     Route: 042
  12. MORPHINE [Concomitant]
     Active Substance: MORPHINE
     Indication: Pain management
     Route: 042
  13. MELATONIN [Concomitant]
     Active Substance: MELATONIN
     Indication: Sleep disorder
     Route: 065

REACTIONS (1)
  - Lethargy [Recovering/Resolving]
